FAERS Safety Report 8966022 (Version 1)
Quarter: 2012Q4

REPORT INFORMATION
  Report Type: 
  Country: US (occurrence: US)
  Receive Date: 20121217
  Receipt Date: 20121217
  Transmission Date: 20130627
  Serious: Yes (Other)
  Sender: FDA-Public Use
  Company Number: US-AMGEN-USASP2012080492

PATIENT
  Age: 55 Year
  Sex: Female

DRUGS (2)
  1. ENBREL [Suspect]
     Indication: PSORIATIC ARTHROPATHY
     Dosage: 50 mg biweekly, UNK
     Dates: start: 20100101
  2. METHOTREXATE [Concomitant]
     Dosage: 2.5 mg 6 tabs per week, UNK
     Dates: start: 2009

REACTIONS (3)
  - Urinary tract infection [Recovered/Resolved]
  - Cyst [Recovered/Resolved]
  - Sepsis [Recovered/Resolved]
